FAERS Safety Report 6025413-6 (Version None)
Quarter: 2008Q4

REPORT INFORMATION
  Report Type: 
  Country: None (occurrence: None)
  Receive Date: 20081229
  Receipt Date: 20081229
  Transmission Date: 20090506
  Serious: Yes (Other)
  Sender: FDA-Public Use
  Company Number: None

PATIENT
  Sex: Female
  Weight: 81.6475 kg

DRUGS (1)
  1. EFFEXOR XR [Suspect]
     Indication: DEPRESSION
     Dosage: 225 MG DAILY PO
     Route: 048
     Dates: start: 20071208, end: 20081108

REACTIONS (5)
  - CHEST PAIN [None]
  - CONTUSION [None]
  - SELF-MEDICATION [None]
  - SWELLING FACE [None]
  - URTICARIA [None]
